FAERS Safety Report 6394027-0 (Version None)
Quarter: 2009Q4

REPORT INFORMATION
  Report Type: 
  Country: None (occurrence: None)
  Receive Date: 20091008
  Receipt Date: 20090928
  Transmission Date: 20100525
  Serious: Yes (Other)
  Sender: FDA-Public Use
  Company Number: PHHY2009CA41868

PATIENT
  Sex: Female

DRUGS (5)
  1. DIOVAN [Suspect]
     Dosage: 1 TABLET (80 MG)
     Route: 048
     Dates: start: 20090301
  2. DIOVAN [Suspect]
     Dosage: 160 MG
     Route: 048
     Dates: start: 20090916
  3. DIOVAN [Suspect]
     Dosage: 80 MG
     Dates: start: 20090928
  4. ATENOLOL [Concomitant]
  5. WATER PILLS [Concomitant]
     Dosage: UNK
     Dates: end: 20090906

REACTIONS (2)
  - BLOOD SODIUM DECREASED [None]
  - FEELING ABNORMAL [None]
